FAERS Safety Report 23233253 (Version 1)
Quarter: 2023Q4

REPORT INFORMATION
  Report Type: Spontaneous
  Country: US (occurrence: US)
  Receive Date: 20231128
  Receipt Date: 20231128
  Transmission Date: 20240110
  Serious: Yes (Hospitalization)
  Sender: FDA-Public Use
  Company Number: US-STRIDES ARCOLAB LIMITED-2023SP017443

PATIENT
  Age: 17 Year
  Sex: Male

DRUGS (11)
  1. DEXAMETHASONE [Suspect]
     Active Substance: DEXAMETHASONE
     Indication: Haemophagocytic lymphohistiocytosis
     Dosage: 20 MILLIGRAM/DAY
     Route: 065
  2. PREDNISOLONE [Suspect]
     Active Substance: PREDNISOLONE
     Indication: Renal transplant
     Dosage: UNK
     Route: 065
  3. PREDNISOLONE [Suspect]
     Active Substance: PREDNISOLONE
     Indication: Immunosuppressant drug therapy
  4. DOXYCYCLINE [Suspect]
     Active Substance: DOXYCYCLINE
     Indication: Human ehrlichiosis
     Dosage: UNK
     Route: 065
  5. TACROLIMUS [Suspect]
     Active Substance: TACROLIMUS
     Indication: Immunosuppressant drug therapy
     Dosage: UNK
     Route: 065
  6. TACROLIMUS [Suspect]
     Active Substance: TACROLIMUS
     Indication: Renal transplant
  7. METHYLPREDNISOLONE [Suspect]
     Active Substance: METHYLPREDNISOLONE
     Indication: Haemophagocytic lymphohistiocytosis
     Dosage: 800 MILLIGRAM/DAY, 3 DOSES RECEIVED
     Route: 065
  8. METHYLPREDNISOLONE [Suspect]
     Active Substance: METHYLPREDNISOLONE
     Indication: Renal transplant
  9. INSULIN NOS [Suspect]
     Active Substance: INSULIN NOS
     Indication: Blood glucose increased
     Dosage: 60 IU INTERNATIONAL UNIT(S)
     Route: 065
  10. INSULIN NOS [Suspect]
     Active Substance: INSULIN NOS
     Dosage: 188 IU INTERNATIONAL UNIT(S)/DAY
     Route: 065
  11. INSULIN NOS [Suspect]
     Active Substance: INSULIN NOS
     Dosage: 388 IU INTERNATIONAL UNIT(S)/DAY
     Route: 065

REACTIONS (6)
  - Mental status changes [Unknown]
  - Hypoglycaemia [Unknown]
  - Insulin resistance [Recovered/Resolved]
  - Condition aggravated [Recovered/Resolved]
  - Human ehrlichiosis [Unknown]
  - Off label use [Unknown]
